FAERS Safety Report 4269805-4 (Version None)
Quarter: 2004Q1

REPORT INFORMATION
  Report Type: 
  Country: None (occurrence: None)
  Receive Date: 20040112
  Receipt Date: 20031231
  Transmission Date: 20041129
  Serious: Yes (Death)
  Sender: FDA-Public Use
  Company Number: USA-2002-0002690

PATIENT
  Age: 41 Year
  Sex: Female
  Weight: 108.8 kg

DRUGS (8)
  1. OXYCONTIN [Suspect]
     Indication: PAIN
     Dosage: 40 MG, Q4H PRN, ORAL
     Route: 048
     Dates: start: 20000728
  2. CAFFEINE (CAFFEINE) [Suspect]
  3. METHANOL (METHANOL) [Suspect]
  4. LORTAB [Concomitant]
  5. NYSTATIN [Concomitant]
  6. LASIX [Concomitant]
  7. K-DUR 10 [Concomitant]
  8. DEMEROL [Concomitant]

REACTIONS (22)
  - ABDOMINAL ADHESIONS [None]
  - AORTIC ATHEROSCLEROSIS [None]
  - ATELECTASIS [None]
  - BRAIN OEDEMA [None]
  - CARDIOMEGALY [None]
  - CHOLESTEROSIS [None]
  - HEPATIC CONGESTION [None]
  - HEPATIC STEATOSIS [None]
  - HEPATOMEGALY [None]
  - LYMPHOID TISSUE HYPERPLASIA [None]
  - NEPHROSCLEROSIS [None]
  - OBESITY [None]
  - OVERDOSE [None]
  - PULMONARY CONGESTION [None]
  - PULMONARY HYPERTENSION [None]
  - PULMONARY OEDEMA [None]
  - RENAL HYPERTROPHY [None]
  - RENAL VESSEL DISORDER [None]
  - SPLEEN CONGESTION [None]
  - SPLENOMEGALY [None]
  - SUDDEN CARDIAC DEATH [None]
  - TOXICOLOGIC TEST ABNORMAL [None]
